FAERS Safety Report 16476252 (Version 1)
Quarter: 2019Q2

REPORT INFORMATION
  Report Type: Spontaneous
  Country: US (occurrence: US)
  Receive Date: 20190626
  Receipt Date: 20190626
  Transmission Date: 20190711
  Serious: Yes (Other)
  Sender: FDA-Public Use
  Company Number: US-UNITED THERAPEUTICS-UNT-2019-010648

PATIENT
  Age: 59 Year
  Sex: Female

DRUGS (1)
  1. REMODULIN [Suspect]
     Active Substance: TREPROSTINIL
     Indication: PULMONARY ARTERIAL HYPERTENSION
     Dosage: 0.0818 ?G/KG, CONTINUING
     Route: 058
     Dates: start: 20181022

REACTIONS (2)
  - Blood pressure fluctuation [Unknown]
  - Dehydration [Unknown]

NARRATIVE: CASE EVENT DATE: 20190613
